FAERS Safety Report 5628904-2 (Version None)
Quarter: 2008Q1

REPORT INFORMATION
  Report Type: 
  Country: None (occurrence: None)
  Receive Date: 20080215
  Receipt Date: 20080205
  Transmission Date: 20080703
  Serious: Yes (Other)
  Sender: FDA-Public Use
  Company Number: US-PFIZER INC-2008012406

PATIENT
  Sex: Female

DRUGS (1)
  1. CHANTIX [Suspect]

REACTIONS (10)
  - AGITATION [None]
  - COLD SWEAT [None]
  - MEMORY IMPAIRMENT [None]
  - NAUSEA [None]
  - NECK PAIN [None]
  - PHOBIA OF DRIVING [None]
  - PRESYNCOPE [None]
  - SOMNOLENCE [None]
  - URINARY INCONTINENCE [None]
  - VISION BLURRED [None]
